FAERS Safety Report 6480043-7 (Version None)
Quarter: 2009Q4

REPORT INFORMATION
  Report Type: 
  Country: None (occurrence: None)
  Receive Date: 20091202
  Receipt Date: 20091119
  Transmission Date: 20100525
  Serious: Yes (Hospitalization)
  Sender: FDA-Public Use
  Company Number: CH-001179

PATIENT
  Sex: Male

DRUGS (1)
  1. MINIRIN [Suspect]
     Indication: NOCTURIA
     Dosage: (0.1 MG ORAL)
     Route: 048
     Dates: start: 20090508

REACTIONS (3)
  - HYPONATRAEMIA [None]
  - MALAISE [None]
  - NAUSEA [None]
